FAERS Safety Report 6843508-1 (Version None)
Quarter: 2010Q3

REPORT INFORMATION
  Report Type: 
  Country: None (occurrence: None)
  Receive Date: 20100715
  Receipt Date: 20100706
  Transmission Date: 20110219
  Serious: Yes (Hospitalization)
  Sender: FDA-Public Use
  Company Number: JP-JNJFOC-20100509500

PATIENT
  Sex: Male

DRUGS (2)
  1. TOPINA TABLETS [Suspect]
     Indication: EPILEPSY
     Route: 048
  2. DEPAKENE [Suspect]
     Indication: EPILEPSY
     Route: 048

REACTIONS (1)
  - INTESTINAL OBSTRUCTION [None]
